FAERS Safety Report 4570289-7 (Version None)
Quarter: 2005Q1

REPORT INFORMATION
  Report Type: 
  Country: None (occurrence: None)
  Receive Date: 20050118
  Receipt Date: 20040722
  Transmission Date: 20050727
  Serious: Yes (Other)
  Sender: FDA-Public Use
  Company Number: HQWYE424926JUL04

PATIENT
  Age: 59 Year
  Sex: Female

DRUGS (4)
  1. PREMPRO [Suspect]
  2. ORTHO-PREFEST (ESTRADIOL/NORGESTIMATE,  ) [Suspect]
  3. PREMARIN [Suspect]
  4. PROVERA [Suspect]

REACTIONS (2)
  - BREAST CANCER [None]
  - MYOCARDIAL INFARCTION [None]
